FAERS Safety Report 23796313 (Version 1)
Quarter: 2024Q2

REPORT INFORMATION
  Report Type: Report from Study
  Country: US (occurrence: US)
  Receive Date: 20240430
  Receipt Date: 20240430
  Transmission Date: 20240716
  Serious: Yes (Other)
  Sender: FDA-Public Use
  Company Number: US-JAZZ PHARMACEUTICALS-2024-US-003770

PATIENT
  Age: 53 Year
  Sex: Female

DRUGS (8)
  1. XYWAV [Suspect]
     Active Substance: CALCIUM OXYBATE\MAGNESIUM OXYBATE\POTASSIUM OXYBATE\SODIUM OXYBATE
     Indication: Hypersomnia
     Dosage: 1.5 GRAM/ 60 ML OF WATER, TID
     Route: 048
     Dates: start: 20240308
  2. XYWAV [Suspect]
     Active Substance: CALCIUM OXYBATE\MAGNESIUM OXYBATE\POTASSIUM OXYBATE\SODIUM OXYBATE
     Dosage: 2.5 GRAMS FIRST DOSE, 2 GRAM SECOND DOSE, 2 GRAM THIRD DOSE
     Route: 048
  3. XYWAV [Suspect]
     Active Substance: CALCIUM OXYBATE\MAGNESIUM OXYBATE\POTASSIUM OXYBATE\SODIUM OXYBATE
     Dosage: 3 GRAM FIRST DOSE, 2 GRAM SECOND DOSE
  4. XYWAV [Suspect]
     Active Substance: CALCIUM OXYBATE\MAGNESIUM OXYBATE\POTASSIUM OXYBATE\SODIUM OXYBATE
     Dosage: 3 GRAM
  5. SYNTHROID [Suspect]
     Active Substance: LEVOTHYROXINE SODIUM
     Indication: Product use in unapproved indication
     Dosage: UNK
     Dates: start: 20240404
  6. BACLOFEN [Suspect]
     Active Substance: BACLOFEN
     Indication: Product used for unknown indication
     Dosage: UNK
  7. ZYRTEC [Suspect]
     Active Substance: CETIRIZINE HYDROCHLORIDE
     Indication: Product used for unknown indication
  8. ZOLOFT [Concomitant]
     Active Substance: SERTRALINE HYDROCHLORIDE
     Indication: Product used for unknown indication

REACTIONS (23)
  - Autoimmune thyroiditis [Unknown]
  - Bipolar I disorder [Recovering/Resolving]
  - Hallucination, visual [Unknown]
  - Cataplexy [Unknown]
  - Snoring [Unknown]
  - Abnormal dreams [Unknown]
  - Drug interaction [Unknown]
  - Eye pain [Unknown]
  - Negative thoughts [Unknown]
  - Palpitations [Unknown]
  - Disturbance in attention [Unknown]
  - Insomnia [Unknown]
  - Disorientation [Not Recovered/Not Resolved]
  - Abnormal dreams [Unknown]
  - Panic reaction [Unknown]
  - Irritability [Unknown]
  - Somnambulism [Unknown]
  - Depressed mood [Unknown]
  - Fear [Unknown]
  - Rapid eye movement sleep behaviour disorder [Unknown]
  - Anxiety [Unknown]
  - Expired product administered [Unknown]
  - Off label use [Unknown]

NARRATIVE: CASE EVENT DATE: 20240416
